FAERS Safety Report 18014361 (Version 1)
Quarter: 2020Q3

REPORT INFORMATION
  Report Type: Report from Study
  Country: CO (occurrence: CO)
  Receive Date: 20200713
  Receipt Date: 20200713
  Transmission Date: 20201103
  Serious: Yes (Hospitalization, Other)
  Sender: FDA-Public Use
  Company Number: CO-ASTELLAS-2018US049476

PATIENT
  Age: 45 Year
  Sex: Female
  Weight: 55 kg

DRUGS (9)
  1. TACROLIMUS. [Suspect]
     Active Substance: TACROLIMUS
     Route: 048
     Dates: start: 2018, end: 20190410
  2. MYCOPHENOLATE [Concomitant]
     Active Substance: MYCOPHENOLIC ACID
     Route: 048
  3. URSACOL [Concomitant]
     Active Substance: URSODIOL
     Indication: LIVER TRANSPLANT
     Dosage: 600 MG, EVERY 12 HOURS (600 MG IN THE MORNING AND 600 MG IN THE NIGHT)
     Route: 048
     Dates: start: 20180502
  4. PREDNISOLONE. [Concomitant]
     Active Substance: PREDNISOLONE
     Indication: PRODUCT USED FOR UNKNOWN INDICATION
     Route: 048
     Dates: start: 20180502
  5. TACROLIMUS. [Suspect]
     Active Substance: TACROLIMUS
     Route: 048
  6. MYCOPHENOLATE [Concomitant]
     Active Substance: MYCOPHENOLIC ACID
     Indication: LIVER TRANSPLANT
     Dosage: 600 MG, EVERY 12 HOURS (600 MG IN THE MORNING AND 600 MG IN THE NIGHT)
     Route: 048
     Dates: start: 20190408
  7. PREDNISOLONE. [Concomitant]
     Active Substance: PREDNISOLONE
     Route: 065
     Dates: end: 201908
  8. TACROLIMUS. [Suspect]
     Active Substance: TACROLIMUS
     Indication: LIVER TRANSPLANT
     Dosage: 2 MG, ONCE DAILY (2 X1MG)
     Route: 048
     Dates: start: 20180502, end: 2018
  9. TACROLIMUS. [Suspect]
     Active Substance: TACROLIMUS
     Indication: LIVER TRANSPLANT
     Route: 048
     Dates: start: 20190411

REACTIONS (15)
  - Jaundice [Recovered/Resolved]
  - Blood bilirubin increased [Unknown]
  - Haemoglobin decreased [Not Recovered/Not Resolved]
  - Abdominal pain lower [Not Recovered/Not Resolved]
  - Gastritis [Unknown]
  - Depression [Unknown]
  - Feeling hot [Unknown]
  - Product use in unapproved indication [Unknown]
  - Gastritis [Recovered/Resolved]
  - Flatulence [Unknown]
  - Vaginal haemorrhage [Unknown]
  - Liver transplant rejection [Recovered/Resolved]
  - Fatigue [Unknown]
  - Inappropriate schedule of product administration [Unknown]
  - Transaminases increased [Recovered/Resolved]

NARRATIVE: CASE EVENT DATE: 201810
